FAERS Safety Report 5251185-9 (Version None)
Quarter: 2007Q1

REPORT INFORMATION
  Report Type: 
  Country: None (occurrence: None)
  Receive Date: 20070228
  Receipt Date: 20060912
  Transmission Date: 20070707
  Serious: No
  Sender: FDA-Public Use
  Company Number: US-GLAXOSMITHKLINE-A0619918A

PATIENT
  Age: 37 Year
  Sex: Male

DRUGS (3)
  1. LAMICTAL [Suspect]
     Indication: BIPOLAR DISORDER
     Dosage: 300MG UNKNOWN
     Route: 048
     Dates: start: 20060301
  2. KLONOPIN [Concomitant]
  3. ADDERALL 10 [Concomitant]

REACTIONS (1)
  - LYMPHOCYTE COUNT DECREASED [None]
